FAERS Safety Report 7048241-1 (Version None)
Quarter: 2010Q4

REPORT INFORMATION
  Report Type: 
  Country: None (occurrence: None)
  Receive Date: 20101015
  Receipt Date: 20101008
  Transmission Date: 20110411
  Serious: Yes (Other)
  Sender: FDA-Public Use
  Company Number: US-ABBOTT-10P-163-0677997-00

PATIENT
  Age: 42 Year
  Sex: Female

DRUGS (3)
  1. HUMIRA [Suspect]
     Indication: PSORIATIC ARTHROPATHY
     Dates: start: 20000101
  2. BIRTH CONTROL PILL [Concomitant]
     Indication: CONTRACEPTION
  3. CHLORPHENIRAMINE MALEATE [Concomitant]
     Indication: HYPERSENSITIVITY
     Dosage: OTC

REACTIONS (3)
  - GALLBLADDER DISORDER [None]
  - NEPHROLITHIASIS [None]
  - UPPER-AIRWAY COUGH SYNDROME [None]
